FAERS Safety Report 8201350-3 (Version None)
Quarter: 2012Q1

REPORT INFORMATION
  Report Type: 
  Country: None (occurrence: None)
  Receive Date: 20120312
  Receipt Date: 20120307
  Transmission Date: 20120608
  Serious: Yes (Life-Threatening)
  Sender: FDA-Public Use
  Company Number: IT-PFIZER INC-2012061675

PATIENT
  Age: 53 Year
  Sex: Male

DRUGS (3)
  1. ERBITUX [Suspect]
     Indication: RECTAL CANCER
     Dosage: 470 MG, CYCLIC
     Route: 042
     Dates: start: 20120114, end: 20120115
  2. FLUOROURACIL [Suspect]
     Indication: RECTAL CANCER
     Dosage: 3000 MG, CYCLIC
     Route: 042
     Dates: start: 20120114, end: 20120115
  3. IRINOTECAN HCL [Suspect]
     Indication: RECTAL CANCER
     Dosage: 340 MG, CYCLIC
     Route: 042
     Dates: start: 20120114, end: 20120115

REACTIONS (1)
  - APNOEA [None]
